FAERS Safety Report 15978184 (Version 2)
Quarter: 2019Q2

REPORT INFORMATION
  Report Type: Spontaneous
  Country: US (occurrence: US)
  Receive Date: 20190218
  Receipt Date: 20190507
  Transmission Date: 20190711
  Serious: No
  Sender: FDA-Public Use
  Company Number: US-SA-2019SA045594

PATIENT
  Age: 78 Year
  Sex: Male

DRUGS (2)
  1. KEVZARA [Suspect]
     Active Substance: SARILUMAB
     Dosage: UNK
     Route: 058
     Dates: start: 20190203, end: 20190204
  2. KEVZARA [Suspect]
     Active Substance: SARILUMAB
     Dosage: UNK
     Route: 058
     Dates: start: 201901

REACTIONS (9)
  - Rash [Recovering/Resolving]
  - Dry mouth [Unknown]
  - Pain in extremity [Unknown]
  - Headache [Unknown]
  - Musculoskeletal pain [Unknown]
  - Dizziness [Unknown]
  - Pruritus [Unknown]
  - Skin exfoliation [Unknown]
  - Pyrexia [Unknown]

NARRATIVE: CASE EVENT DATE: 20190203
